FAERS Safety Report 25145478 (Version 1)
Quarter: 2025Q2

REPORT INFORMATION
  Report Type: Spontaneous
  Country: US (occurrence: None)
  Receive Date: 20250401
  Receipt Date: 20250401
  Transmission Date: 20250717
  Serious: Yes (Hospitalization)
  Sender: FDA-CTU
  Company Number: None

PATIENT
  Age: 57 Year
  Sex: Female
  Weight: 58.5 kg

DRUGS (2)
  1. CIPROFLOXACIN [Suspect]
     Active Substance: CIPROFLOXACIN
     Dates: start: 20250319, end: 20250330
  2. Hormones only [Concomitant]

REACTIONS (7)
  - Arthralgia [None]
  - Myalgia [None]
  - Bone pain [None]
  - Musculoskeletal stiffness [None]
  - Muscle strain [None]
  - Tendon pain [None]
  - Musculoskeletal stiffness [None]

NARRATIVE: CASE EVENT DATE: 20250319
